FAERS Safety Report 9619188 (Version 1)
Quarter: 2013Q4

REPORT INFORMATION
  Report Type: Report from Study
  Country: NL (occurrence: NL)
  Receive Date: 20131014
  Receipt Date: 20131014
  Transmission Date: 20140711
  Serious: Yes (Hospitalization)
  Sender: FDA-Public Use
  Company Number: NL-TEVA-436431ISR

PATIENT
  Age: 69 Year
  Sex: Female

DRUGS (11)
  1. PACLITAXEL [Suspect]
     Indication: BREAST CANCER RECURRENT
     Dosage: 138 MILLIGRAM DAILY;
     Route: 042
     Dates: start: 20130212, end: 20130521
  2. BEVACIZUMAB [Suspect]
     Indication: BREAST CANCER RECURRENT
     Dosage: 1410 MILLIGRAM DAILY;
     Route: 042
     Dates: start: 20130212, end: 20130806
  3. MYOCET [Suspect]
     Dosage: 0 MILLIGRAM DAILY;
  4. PARACETAMOL [Suspect]
  5. OXAZEPAM [Suspect]
  6. LITHIUM [Suspect]
  7. AMLODIPIN [Concomitant]
     Dosage: 5 MILLIGRAM DAILY;
  8. RABEPRAZOLE [Concomitant]
     Dosage: 20 MILLIGRAM DAILY;
     Dates: start: 20110221
  9. LEVOTHYROXIN [Concomitant]
     Dosage: 125 MICROGRAM DAILY;
     Dates: start: 20110309
  10. ZOLPIDEM [Concomitant]
     Dosage: 10 MILLIGRAM DAILY;
     Dates: start: 20110309
  11. SIMVASTATIN [Concomitant]
     Dosage: 40 MILLIGRAM DAILY;
     Dates: start: 20110309

REACTIONS (1)
  - Hepatic function abnormal [Recovered/Resolved with Sequelae]
